FAERS Safety Report 8328425-2 (Version None)
Quarter: 2012Q2

REPORT INFORMATION
  Report Type: 
  Country: None (occurrence: None)
  Receive Date: 20120502
  Receipt Date: 20100715
  Transmission Date: 20120825
  Serious: No
  Sender: FDA-Public Use
  Company Number: US-TEVA-2010003801

PATIENT
  Sex: Female
  Weight: 63.56 kg

DRUGS (11)
  1. EFFEXOR [Concomitant]
     Dates: start: 20040101
  2. VITAMIN C [Concomitant]
  3. SIMVASTATIN [Concomitant]
     Dates: start: 20090101
  4. CALCIUM W VIT D [Concomitant]
  5. MULTI-VITAMIN [Concomitant]
  6. VITAMIN E [Concomitant]
  7. NUVIGIL [Suspect]
     Indication: SEDATION
     Route: 048
     Dates: end: 20100601
  8. LOVAZA [Concomitant]
  9. ALLERGY INJECTION [Concomitant]
  10. LEVOTHYROXINE SODIUM [Concomitant]
  11. VITAMIN B-12 [Concomitant]

REACTIONS (1)
  - INSOMNIA [None]
